FAERS Safety Report 9386027 (Version 2)
Quarter: 2013Q3

REPORT INFORMATION
  Report Type: Spontaneous
  Country: US (occurrence: US)
  Receive Date: 20130705
  Receipt Date: 20130729
  Transmission Date: 20140515
  Serious: Yes (Hospitalization, Other)
  Sender: FDA-Public Use
  Company Number: US-B.I. PHARMACEUTICALS,INC./RIDGEFIELD-2013-BI-19105BP

PATIENT
  Age: 85 Year
  Sex: Male
  Weight: 95.7 kg

DRUGS (11)
  1. PRADAXA [Suspect]
     Indication: ATRIAL FIBRILLATION
     Dosage: 300 MG
     Route: 048
     Dates: start: 2011, end: 20130624
  2. SPIRIVA [Suspect]
     Dosage: 18 MCG
     Route: 055
     Dates: start: 2011
  3. SYMBICORT [Concomitant]
     Route: 055
  4. FUROSEMIDE [Concomitant]
     Dosage: 80 MG
     Route: 048
  5. POTASSIUM [Concomitant]
     Dosage: 40 MEQ
     Route: 048
  6. CARVEDILOL [Concomitant]
     Dosage: 25 MG
     Route: 048
  7. PANTOPRAZOLE [Concomitant]
     Dosage: 40 MG
     Route: 048
  8. ATORVASTATIN [Concomitant]
     Dosage: 10 MG
     Route: 048
  9. CARAFATE [Concomitant]
     Dosage: 4 G
     Route: 048
  10. FERROUS SULFATE [Concomitant]
     Route: 048
  11. KCL [Concomitant]
     Dosage: 80 MEQ

REACTIONS (4)
  - Gastric haemorrhage [Recovered/Resolved]
  - Dizziness [Recovered/Resolved]
  - Haemoglobin decreased [Recovered/Resolved]
  - Dyspnoea [Recovered/Resolved]
